FAERS Safety Report 18265969 (Version 1)
Quarter: 2020Q3

REPORT INFORMATION
  Report Type: Spontaneous
  Country: US (occurrence: US)
  Receive Date: 20200915
  Receipt Date: 20200915
  Transmission Date: 20201103
  Serious: Yes (Hospitalization, Other)
  Sender: FDA-Public Use
  Company Number: US-SUN PHARMACEUTICAL INDUSTRIES LTD-2020R1-260598

PATIENT
  Age: 13 Year
  Sex: Male

DRUGS (5)
  1. EPIDIOLEX [Interacting]
     Active Substance: CANNABIDIOL
     Indication: SEIZURE
     Dosage: 5 MILLIGRAM/KILOGRAM/DAY(DIVIDED BID)
     Route: 065
  2. EPIDIOLEX [Interacting]
     Active Substance: CANNABIDIOL
     Dosage: 10 MILLIGRAM/KILOGRAM/DAY
     Route: 065
  3. LITHIUM. [Interacting]
     Active Substance: LITHIUM
     Dosage: 600 UNK, QHS
     Route: 065
  4. LITHIUM. [Suspect]
     Active Substance: LITHIUM
     Indication: LENNOX-GASTAUT SYNDROME
     Dosage: 600 MILLIGRAM, QAM
     Route: 065
  5. LITHIUM. [Interacting]
     Active Substance: LITHIUM
     Indication: MENTAL DISORDER
     Dosage: 300 UNK, QPM
     Route: 065

REACTIONS (8)
  - Toxicity to various agents [Unknown]
  - Antipsychotic drug level increased [Unknown]
  - Drug interaction [Unknown]
  - Lethargy [Unknown]
  - Hypophagia [Unknown]
  - Ataxia [Unknown]
  - Asthenia [Unknown]
  - Balance disorder [Unknown]
